FAERS Safety Report 5832366-X (Version None)
Quarter: 2008Q3

REPORT INFORMATION
  Report Type: 
  Country: None (occurrence: None)
  Receive Date: 20080731
  Receipt Date: 20080731
  Transmission Date: 20090109
  Serious: Yes (Hospitalization, Disabling)
  Sender: FDA-Public Use
  Company Number: None

PATIENT
  Age: 74 Year
  Sex: Female
  Weight: 92.9874 kg

DRUGS (2)
  1. FONDAPARINUX 7.5MG GLAXOSMITHKLINE [Suspect]
     Indication: DEEP VEIN THROMBOSIS
     Dosage: 7.5MG QD SQ
     Route: 058
     Dates: start: 20080411, end: 20080414
  2. FONDAPARINUX 7.5MG GLAXOSMITHKLINE [Suspect]
     Indication: PULMONARY EMBOLISM
     Dosage: 7.5MG QD SQ
     Route: 058
     Dates: start: 20080411, end: 20080414

REACTIONS (2)
  - ARTERIAL RUPTURE [None]
  - INTRA-ABDOMINAL HAEMATOMA [None]
